FAERS Safety Report 24895558 (Version 1)
Quarter: 2025Q1

REPORT INFORMATION
  Report Type: Spontaneous
  Country: US (occurrence: None)
  Receive Date: 20250128
  Receipt Date: 20250128
  Transmission Date: 20250409
  Serious: Yes (Other)
  Sender: ACS DOBFAR
  Company Number: US-ACS-20250053

PATIENT
  Age: 67 Year
  Sex: Female

DRUGS (3)
  1. CEFTRIAXONE [Suspect]
     Active Substance: CEFTRIAXONE
     Indication: Cystitis
     Route: 040
     Dates: start: 20250118, end: 20250118
  2. HYDROMORPHONE [Concomitant]
     Active Substance: HYDROMORPHONE
     Indication: Pain
     Dates: start: 20250118, end: 20250118
  3. SALINE [Concomitant]
     Active Substance: SODIUM CHLORIDE
     Dates: start: 20250118, end: 20250118

REACTIONS (4)
  - Cyanosis [Recovered/Resolved]
  - Vomiting [Recovered/Resolved]
  - Feeling hot [Recovered/Resolved]
  - Malaise [Recovered/Resolved]

NARRATIVE: CASE EVENT DATE: 20250118
